FAERS Safety Report 26140257 (Version 1)
Quarter: 2025Q4

REPORT INFORMATION
  Report Type: Spontaneous
  Country: US (occurrence: None)
  Receive Date: 20251209
  Receipt Date: 20251209
  Transmission Date: 20260118
  Serious: Yes (Other)
  Sender: FDA-CTU
  Company Number: None

PATIENT
  Age: 31 Year
  Sex: Female

DRUGS (1)
  1. ISENTRESS [Suspect]
     Active Substance: RALTEGRAVIR POTASSIUM

REACTIONS (4)
  - Erythema [None]
  - Skin discomfort [None]
  - Pruritus [None]
  - Rash papular [None]

NARRATIVE: CASE EVENT DATE: 20251115
